FAERS Safety Report 16204560 (Version 6)
Quarter: 2020Q1

REPORT INFORMATION
  Report Type: Spontaneous
  Country: US (occurrence: US)
  Receive Date: 20190416
  Receipt Date: 20200211
  Transmission Date: 20200409
  Serious: Yes (Death, Hospitalization)
  Sender: FDA-Public Use
  Company Number: US-ACTELION-A-US2019-189137

PATIENT
  Age: 74 Year
  Sex: Female
  Weight: 86.17 kg

DRUGS (1)
  1. VELETRI [Suspect]
     Active Substance: EPOPROSTENOL
     Indication: PULMONARY ARTERIAL HYPERTENSION
     Dosage: 48 NG/KG, PER MIN
     Route: 042

REACTIONS (6)
  - Death [Fatal]
  - Pulmonary arterial hypertension [Unknown]
  - Asthenia [Unknown]
  - Device malfunction [Unknown]
  - Hypoxia [Unknown]
  - Hypotension [Unknown]

NARRATIVE: CASE EVENT DATE: 20200105
